FAERS Safety Report 9054625 (Version 1)
Quarter: 2013Q1

REPORT INFORMATION
  Report Type: Spontaneous
  Country: DE (occurrence: DE)
  Receive Date: 20130208
  Receipt Date: 20130208
  Transmission Date: 20140127
  Serious: Yes (Other)
  Sender: FDA-Public Use
  Company Number: DE-JNJFOC-20130114779

PATIENT
  Sex: Male
  Weight: 92 kg

DRUGS (3)
  1. XARELTO [Suspect]
     Indication: CEREBROVASCULAR ACCIDENT
     Route: 048
  2. XARELTO [Suspect]
     Indication: ATRIAL FIBRILLATION
     Route: 048
  3. PLAVIX [Interacting]
     Indication: ANGIOPLASTY

REACTIONS (6)
  - Helicobacter gastritis [Unknown]
  - Melaena [Unknown]
  - Haemoglobin decreased [Unknown]
  - Epistaxis [Unknown]
  - Skin haemorrhage [Unknown]
  - Drug interaction [Unknown]
